FAERS Safety Report 7754158-7 (Version None)
Quarter: 2011Q3

REPORT INFORMATION
  Report Type: 
  Country: None (occurrence: None)
  Receive Date: 20110915
  Receipt Date: 20110913
  Transmission Date: 20111222
  Serious: No
  Sender: FDA-Public Use
  Company Number: US-PFIZER INC-2011216467

PATIENT
  Sex: Female

DRUGS (1)
  1. ADVIL LIQUI-GELS [Suspect]
     Indication: PYREXIA
     Dosage: UNK
     Dates: start: 20110913

REACTIONS (3)
  - OVERDOSE [None]
  - ABDOMINAL PAIN UPPER [None]
  - DYSPEPSIA [None]
